FAERS Safety Report 6080550-5 (Version None)
Quarter: 2009Q1

REPORT INFORMATION
  Report Type: 
  Country: None (occurrence: None)
  Receive Date: 20090217
  Receipt Date: 20090213
  Transmission Date: 20090719
  Serious: Yes (Hospitalization)
  Sender: FDA-Public Use
  Company Number: B0547685A

PATIENT
  Age: 64 Year
  Sex: Female
  Weight: 40 kg

DRUGS (2)
  1. VALTREX [Suspect]
     Indication: HERPES ZOSTER
     Dosage: 500MG PER DAY
     Route: 048
     Dates: start: 20081117, end: 20081120
  2. DIAMOX [Concomitant]
     Dosage: 375MG PER DAY
     Route: 065

REACTIONS (4)
  - ALTERED STATE OF CONSCIOUSNESS [None]
  - DYSARTHRIA [None]
  - DYSKINESIA [None]
  - NERVOUS SYSTEM DISORDER [None]
